APPROVED DRUG PRODUCT: ISOTRETINOIN
Active Ingredient: ISOTRETINOIN
Strength: 30MG
Dosage Form/Route: CAPSULE;ORAL
Application: A218194 | Product #004 | TE Code: AB2
Applicant: AUROBINDO PHARMA LTD
Approved: Jan 29, 2024 | RLD: No | RS: No | Type: RX